FAERS Safety Report 23324087 (Version 1)
Quarter: 2023Q4

REPORT INFORMATION
  Report Type: Report from Study
  Country: US (occurrence: US)
  Receive Date: 20231221
  Receipt Date: 20231221
  Transmission Date: 20240109
  Serious: No
  Sender: FDA-Public Use
  Company Number: US-ALXN-A202309322

PATIENT
  Sex: Male

DRUGS (2)
  1. ULTOMIRIS [Suspect]
     Active Substance: RAVULIZUMAB-CWVZ
     Indication: Myasthenia gravis
     Dosage: UNK
     Route: 065
     Dates: start: 20230630
  2. ULTOMIRIS [Suspect]
     Active Substance: RAVULIZUMAB-CWVZ
     Dosage: UNK
     Route: 065
     Dates: start: 20230714

REACTIONS (16)
  - Abdominal pain upper [Recovered/Resolved]
  - Sleep apnoea syndrome [Unknown]
  - Malaise [Not Recovered/Not Resolved]
  - Respiratory disorder [Unknown]
  - Abdominal discomfort [Unknown]
  - Lethargy [Unknown]
  - Stress [Unknown]
  - Tinnitus [Unknown]
  - Head discomfort [Not Recovered/Not Resolved]
  - Temperature intolerance [Unknown]
  - Drug ineffective [Unknown]
  - Headache [Unknown]
  - Asthenia [Unknown]
  - Dizziness [Unknown]
  - Fatigue [Unknown]
  - Nausea [Unknown]

NARRATIVE: CASE EVENT DATE: 20230718
